FAERS Safety Report 10699414 (Version 2)
Quarter: 2015Q1

REPORT INFORMATION
  Report Type: Spontaneous
  Country: US (occurrence: US)
  Receive Date: 20150109
  Receipt Date: 20150120
  Transmission Date: 20150721
  Serious: Yes (Hospitalization)
  Sender: FDA-Public Use
  Company Number: US-BEH-2014047643

PATIENT
  Age: 20 Year
  Sex: Male

DRUGS (4)
  1. HUMATE [Suspect]
     Active Substance: HUMAN COAGULATION FACTOR VIII/VON WILLEBRAND FACTOR COMPLEX
     Dosage: RECEIVED 30 U/KG ON DAYS 1, 2 AND 4 OF HOSPITALIZATION
     Dates: start: 20150101
  2. HUMATE [Suspect]
     Active Substance: HUMAN COAGULATION FACTOR VIII/VON WILLEBRAND FACTOR COMPLEX
     Indication: HAEMARTHROSIS
     Dosage: RECEIVED 30 U/KG ON DAYS 1, 2 AND 4 OF HOSPITALIZATION
     Dates: start: 20141229
  3. HUMATE [Suspect]
     Active Substance: HUMAN COAGULATION FACTOR VIII/VON WILLEBRAND FACTOR COMPLEX
     Indication: FACTOR VIII DEFICIENCY
     Dates: end: 20141224
  4. HUMATE [Suspect]
     Active Substance: HUMAN COAGULATION FACTOR VIII/VON WILLEBRAND FACTOR COMPLEX
     Dosage: RECEIVED 30 U/KG ON DAYS 1, 2 AND 4 OF HOSPITALIZATION
     Dates: start: 20141230

REACTIONS (4)
  - Back pain [Recovering/Resolving]
  - Arthralgia [Recovering/Resolving]
  - Haemarthrosis [Recovering/Resolving]
  - Drug dose omission [Recovered/Resolved]

NARRATIVE: CASE EVENT DATE: 20141229
